FAERS Safety Report 9302558 (Version 1)
Quarter: 2013Q2

REPORT INFORMATION
  Report Type: Report from Study
  Country: US (occurrence: None)
  Receive Date: 20130516
  Receipt Date: 20130516
  Transmission Date: 20140414
  Serious: Yes (Hospitalization)
  Sender: FDA-Public Use
  Company Number: ACO_35983_2013

PATIENT
  Age: 60 Year
  Sex: Male

DRUGS (8)
  1. AMPYRA [Suspect]
     Indication: MULTIPLE SCLEROSIS
     Route: 048
     Dates: start: 2010, end: 2013
  2. CELLCEPT(MYCOPHENOLATE MOFETIL) [Concomitant]
  3. CRESTOR (ROSUVASTATIN CALCIUM) [Concomitant]
  4. PROVIGIL (MODAFINIL) [Concomitant]
  5. BACLOFEN [Concomitant]
  6. LISINOPRIL [Concomitant]
  7. SOLU-MEDROL (METHYLPREDNISOLONE SODIUM SUCCINATE) [Concomitant]
  8. ALBUTEROL (SALBUTAMOL SULFATE) [Concomitant]

REACTIONS (8)
  - Rib fracture [None]
  - Fall [None]
  - Memory impairment [None]
  - Diarrhoea [None]
  - Vomiting [None]
  - Weight decreased [None]
  - Food intolerance [None]
  - Dyskinesia [None]
